FAERS Safety Report 25584955 (Version 2)
Quarter: 2025Q4

REPORT INFORMATION
  Report Type: Spontaneous
  Country: TR (occurrence: TR)
  Receive Date: 20250721
  Receipt Date: 20251015
  Transmission Date: 20260117
  Serious: Yes (Hospitalization)
  Sender: BRISTOL-MYERS SQUIBB COMPANY
  Company Number: TR-BRISTOL-MYERS SQUIBB COMPANY-2025-099891

PATIENT
  Age: 52 Year
  Sex: Female

DRUGS (1)
  1. NIVOLUMAB [Suspect]
     Active Substance: NIVOLUMAB
     Indication: Ovarian cancer

REACTIONS (2)
  - Tongue pigmentation [Unknown]
  - Off label use [Unknown]
